FAERS Safety Report 18360396 (Version 1)
Quarter: 2020Q4

REPORT INFORMATION
  Report Type: Spontaneous
  Country: US (occurrence: US)
  Receive Date: 20201008
  Receipt Date: 20201008
  Transmission Date: 20210114
  Serious: Yes (Other)
  Sender: FDA-Public Use
  Company Number: None

PATIENT
  Age: 67 Year
  Sex: Female
  Weight: 93.6 kg

DRUGS (8)
  1. LEVOTHYROXINE. [Concomitant]
     Active Substance: LEVOTHYROXINE
  2. FLUOXETINE [Concomitant]
     Active Substance: FLUOXETINE HYDROCHLORIDE
  3. MAGNESIUM [Concomitant]
     Active Substance: MAGNESIUM
  4. VITAMIN C [Concomitant]
     Active Substance: ASCORBIC ACID
  5. ESTRADIOL TRANSDERMAL SYSTEM [Suspect]
     Active Substance: ESTRADIOL
     Indication: HYSTERECTOMY
     Dosage: ?          QUANTITY:1 PATCH(ES);OTHER FREQUENCY:WEEKLY;?
     Route: 062
  6. TRANSDERMAL PATCH [Concomitant]
  7. VITAMIN D3 [Concomitant]
     Active Substance: CHOLECALCIFEROL
  8. WOMEN^S HEALTH VITAMINS [Concomitant]

REACTIONS (6)
  - Mood altered [None]
  - Device adhesion issue [None]
  - Hot flush [None]
  - Insomnia [None]
  - Product substitution issue [None]
  - Drug ineffective [None]

NARRATIVE: CASE EVENT DATE: 20200806
